FAERS Safety Report 10250704 (Version 11)
Quarter: 2016Q2

REPORT INFORMATION
  Report Type: Report from Study
  Country: AT (occurrence: AT)
  Receive Date: 20140620
  Receipt Date: 20160407
  Transmission Date: 20160815
  Serious: Yes (Death, Hospitalization, Other)
  Sender: FDA-Public Use
  Company Number: AT-INCYTE CORPORATION-2014IN000800

PATIENT
  Age: 67 Year
  Sex: Male
  Weight: 92 kg

DRUGS (45)
  1. CONCOR [Concomitant]
     Active Substance: BISOPROLOL FUMARATE
     Indication: ANGINA PECTORIS
     Dosage: UNK
     Route: 065
     Dates: start: 20131014, end: 20150208
  2. GALVUS [Concomitant]
     Active Substance: VILDAGLIPTIN
     Indication: TYPE 2 DIABETES MELLITUS
     Dosage: UNK
     Route: 065
     Dates: start: 20131029, end: 20150208
  3. SORTIS [Concomitant]
     Active Substance: ATORVASTATIN
     Indication: HYPERLIPIDAEMIA
     Dosage: UNK
     Route: 065
     Dates: start: 201310, end: 20150208
  4. OLEOVIT D3 [Concomitant]
     Active Substance: CHOLECALCIFEROL
     Indication: VITAMIN D DEFICIENCY
     Dosage: UNK
     Route: 065
     Dates: start: 201310, end: 20140601
  5. VERTIROSAN [Concomitant]
     Indication: VOMITING
  6. VIDAZA [Concomitant]
     Active Substance: AZACITIDINE
     Dosage: UNK
     Route: 065
     Dates: start: 20140811, end: 20140811
  7. RUXOLITINIB [Concomitant]
     Active Substance: RUXOLITINIB
     Dosage: UNK
  8. JAKAFI [Suspect]
     Active Substance: RUXOLITINIB
     Dosage: 15 MG, BID
     Route: 048
     Dates: start: 20140128
  9. LASIX [Concomitant]
     Active Substance: FUROSEMIDE
     Indication: OEDEMA
     Dosage: UNK
     Route: 065
     Dates: start: 201310, end: 20150208
  10. RESONIUM [Concomitant]
     Active Substance: SODIUM POLYSTYRENE SULFONATE
     Indication: HYPERKALAEMIA
     Dosage: UNK
     Route: 065
     Dates: start: 20150109, end: 20150208
  11. MIRTAZAPIN [Concomitant]
     Active Substance: MIRTAZAPINE
     Indication: MAJOR DEPRESSION
     Dosage: UNK
     Route: 065
     Dates: start: 20150109, end: 20150208
  12. VERTIROSAN [Concomitant]
     Indication: VERTIGO
     Dosage: 50 MG, UNK
     Route: 065
     Dates: start: 20140204, end: 20140221
  13. VIDAZA [Concomitant]
     Active Substance: AZACITIDINE
     Dosage: UNK
     Route: 065
     Dates: start: 20140807, end: 20140807
  14. VIDAZA [Concomitant]
     Active Substance: AZACITIDINE
     Dosage: UNK
     Route: 065
     Dates: start: 20140908, end: 20140910
  15. RUXOLITINIB [Concomitant]
     Active Substance: RUXOLITINIB
     Dosage: 30 MG, UNK
     Route: 065
     Dates: start: 20140318, end: 20150124
  16. PENTALOC [Concomitant]
     Indication: PROPHYLAXIS
     Dosage: UNK
     Route: 065
     Dates: start: 201310, end: 201502
  17. VIDAZA [Concomitant]
     Active Substance: AZACITIDINE
     Indication: CHEMOTHERAPY
     Dosage: UNK
     Route: 065
     Dates: start: 20140805, end: 20141209
  18. VIDAZA [Concomitant]
     Active Substance: AZACITIDINE
     Dosage: UNK
     Route: 065
     Dates: start: 20141103, end: 20141104
  19. SEROXAT [Concomitant]
     Active Substance: PAROXETINE HYDROCHLORIDE
     Indication: DEPRESSION
     Dosage: UNK
     Route: 065
     Dates: start: 20141215, end: 20150108
  20. PRIVIGEN [Concomitant]
     Active Substance: HUMAN IMMUNOGLOBULIN G
     Indication: PROPHYLAXIS
     Dosage: UNK
     Route: 065
     Dates: start: 20150105, end: 20150105
  21. TRITACE [Concomitant]
     Active Substance: RAMIPRIL
     Indication: HYPERTENSION
     Dosage: UNK
     Route: 065
     Dates: start: 20140630, end: 20150109
  22. RUXOLITINIB [Concomitant]
     Active Substance: RUXOLITINIB
     Dosage: 15 MG, UNK
     Route: 065
     Dates: start: 20140207, end: 20140317
  23. THROMBO ASS [Concomitant]
     Active Substance: ASPIRIN
     Indication: THROMBOSIS PROPHYLAXIS
     Dosage: 50 MG, UNK
     Route: 065
     Dates: start: 201402, end: 20140805
  24. NICOLAN//NICORANDIL [Concomitant]
     Indication: CORONARY ARTERY DISEASE
     Dosage: UNK
     Route: 065
     Dates: start: 20140806, end: 20150208
  25. SOLUDACORTIN [Concomitant]
     Indication: VOMITING
  26. VERTIROSAN [Concomitant]
     Indication: HYPERHIDROSIS
  27. ROCEPHIN [Concomitant]
     Active Substance: CEFTRIAXONE SODIUM
     Indication: PROPHYLAXIS
     Dosage: UNK
     Route: 065
     Dates: start: 20141111, end: 20141111
  28. RUXOLITINIB [Concomitant]
     Active Substance: RUXOLITINIB
     Indication: GENERAL PHYSICAL HEALTH DETERIORATION
     Dosage: 30 MG, 6 PER WEEK
     Dates: start: 20140108, end: 20140121
  29. RUXOLITINIB [Concomitant]
     Active Substance: RUXOLITINIB
     Dosage: 15 MG, UNK
     Route: 065
     Dates: start: 20140122, end: 20140126
  30. VIDAZA [Concomitant]
     Active Substance: AZACITIDINE
     Dosage: UNK
     Route: 065
     Dates: start: 20140902, end: 20140905
  31. AUGMENTIN [Concomitant]
     Active Substance: AMOXICILLIN\CLAVULANATE POTASSIUM
     Indication: PYREXIA
     Dosage: UNK
     Route: 065
     Dates: start: 20141111, end: 20141117
  32. SOLUDACORTIN [Concomitant]
     Indication: VERTIGO
     Dosage: UNK
     Route: 065
     Dates: start: 20140204, end: 20140205
  33. SOLUDACORTIN [Concomitant]
     Indication: HYPERHIDROSIS
  34. VIDAZA [Concomitant]
     Active Substance: AZACITIDINE
     Dosage: UNK
     Route: 065
     Dates: start: 20140813, end: 20140813
  35. VIDAZA [Concomitant]
     Active Substance: AZACITIDINE
     Dosage: UNK
     Route: 065
     Dates: start: 20141209, end: 20141209
  36. RUXOLITINIB [Concomitant]
     Active Substance: RUXOLITINIB
     Dosage: 30 MG, UNK
     Route: 065
     Dates: start: 20140127, end: 20140206
  37. JAKAFI [Suspect]
     Active Substance: RUXOLITINIB
     Indication: MYELOFIBROSIS
     Dosage: 7.5 MG, (6 TIMES A WEEK)
     Route: 048
     Dates: start: 20120710
  38. DANCOR [Concomitant]
     Active Substance: NICORANDIL
     Indication: CORONARY ARTERY DISEASE
     Dosage: UNK
     Route: 065
     Dates: start: 20110203, end: 20140805
  39. UROSIN                             /00003301/ [Concomitant]
     Indication: HYPERURICAEMIA
     Dosage: UNK
     Route: 065
     Dates: start: 20110524, end: 20150109
  40. TRENTAL [Concomitant]
     Active Substance: PENTOXIFYLLINE
     Indication: VERTIGO
     Dosage: UNK
     Route: 065
     Dates: start: 20140204, end: 20140221
  41. TRENTAL [Concomitant]
     Active Substance: PENTOXIFYLLINE
     Indication: VOMITING
  42. TRENTAL [Concomitant]
     Active Substance: PENTOXIFYLLINE
     Indication: HYPERHIDROSIS
  43. VIDAZA [Concomitant]
     Active Substance: AZACITIDINE
     Dosage: UNK
     Route: 065
     Dates: start: 20141027, end: 20141031
  44. VIDAZA [Concomitant]
     Active Substance: AZACITIDINE
     Dosage: UNK
     Route: 065
     Dates: start: 20141201, end: 20141205
  45. VIDAZA [Concomitant]
     Active Substance: AZACITIDINE
     Dosage: UNK
     Route: 065
     Dates: start: 20140805, end: 20140805

REACTIONS (15)
  - Myelofibrosis [Fatal]
  - Nephropathy [Unknown]
  - Hypocalcaemia [Recovered/Resolved]
  - Cholecystitis [Recovered/Resolved]
  - Anaemia [Unknown]
  - Ascites [Unknown]
  - Depression [Unknown]
  - Acute myeloid leukaemia [Fatal]
  - General physical health deterioration [Recovered/Resolved]
  - Thrombocytopenia [Unknown]
  - White blood cell count increased [Unknown]
  - Haematoma [Not Recovered/Not Resolved]
  - Erysipelas [Recovered/Resolved]
  - General physical health deterioration [Unknown]
  - Blood lactate dehydrogenase increased [Unknown]

NARRATIVE: CASE EVENT DATE: 20140108
